FAERS Safety Report 4878053-6 (Version None)
Quarter: 2006Q1

REPORT INFORMATION
  Report Type: 
  Country: None (occurrence: None)
  Receive Date: 20060110
  Receipt Date: 20051219
  Transmission Date: 20060701
  Serious: Yes (Death, Other)
  Sender: FDA-Public Use
  Company Number: 2005170983

PATIENT
  Age: 62 Year
  Sex: Male

DRUGS (6)
  1. CELEBREX [Suspect]
     Indication: RHEUMATOID ARTHRITIS
     Dosage: (200 MG, 1-2 DOSES DAILY), ORAL
     Route: 048
     Dates: start: 20000915, end: 20020412
  2. SULFASALAZINE [Concomitant]
  3. CYTOTEC [Concomitant]
  4. DAFALGAN CODEINE             (CODEINE PHOSPHATE, PARACETAMOL) [Concomitant]
  5. ARAVA [Concomitant]
  6. NATISEDINE                 (PHENOBARBITAL SALT WITH QUINIDINE) [Concomitant]

REACTIONS (4)
  - BLOOD PRESSURE SYSTOLIC INCREASED [None]
  - CARDIOVASCULAR DISORDER [None]
  - LOSS OF CONSCIOUSNESS [None]
  - SUDDEN DEATH [None]
